FAERS Safety Report 20145133 (Version 1)
Quarter: 2021Q4

REPORT INFORMATION
  Report Type: Spontaneous
  Country: FR (occurrence: FR)
  Receive Date: 20211203
  Receipt Date: 20211203
  Transmission Date: 20220303
  Serious: Yes (Death, Hospitalization)
  Sender: FDA-Public Use
  Company Number: FR-ROCHE-2953462

PATIENT
  Age: 17 Year
  Sex: Female

DRUGS (2)
  1. RITUXIMAB-PVVR [Suspect]
     Active Substance: RITUXIMAB-PVVR
     Indication: Autoimmune neutropenia
     Route: 065
  2. CYCLOPHOSPHAMIDE [Suspect]
     Active Substance: CYCLOPHOSPHAMIDE
     Indication: Autoimmune neutropenia
     Route: 065

REACTIONS (9)
  - Fungal endocarditis [Fatal]
  - Aspergillus infection [Fatal]
  - Pancytopenia [Unknown]
  - Sinusitis [Unknown]
  - Coronary artery insufficiency [Unknown]
  - Brain abscess [Unknown]
  - Septic embolus [Unknown]
  - Brain compression [Unknown]
  - Off label use [Unknown]
